FAERS Safety Report 25684002 (Version 3)
Quarter: 2025Q3

REPORT INFORMATION
  Report Type: Report from Study
  Country: US (occurrence: US)
  Receive Date: 20250815
  Receipt Date: 20250925
  Transmission Date: 20251021
  Serious: Yes (Hospitalization)
  Sender: JOHNSON AND JOHNSON
  Company Number: US-JNJFOC-20250729222

PATIENT
  Age: 68 Year
  Sex: Female
  Weight: 106.141 kg

DRUGS (5)
  1. VELETRI [Suspect]
     Active Substance: EPOPROSTENOL
     Indication: Pulmonary arterial hypertension
     Dosage: VELETRI 1.5MG VIAL INTRAVENOUS
     Route: 042
  2. VELETRI [Suspect]
     Active Substance: EPOPROSTENOL
     Dosage: VELETRI 1.5MG VIAL INTRAVENOUS
     Route: 042
  3. VELETRI [Suspect]
     Active Substance: EPOPROSTENOL
     Dosage: VELETRI 1.5MG VIAL INTRAVENOUS
     Route: 042
  4. TADALAFIL [Concomitant]
     Active Substance: TADALAFIL
     Indication: Product used for unknown indication
  5. OPSUMIT [Concomitant]
     Active Substance: MACITENTAN
     Indication: Product used for unknown indication

REACTIONS (9)
  - Hypervolaemia [Recovered/Resolved]
  - Transfusion [Unknown]
  - Device occlusion [Unknown]
  - Dyspnoea [Unknown]
  - Tachycardia [Unknown]
  - Oxygen saturation decreased [Unknown]
  - Dysphonia [Unknown]
  - Chest discomfort [Unknown]
  - Underdose [Unknown]

NARRATIVE: CASE EVENT DATE: 20250701
